FAERS Safety Report 20375877 (Version 1)
Quarter: 2022Q1

REPORT INFORMATION
  Report Type: Spontaneous
  Country: CA (occurrence: CA)
  Receive Date: 20220125
  Receipt Date: 20220125
  Transmission Date: 20220423
  Serious: Yes (Other)
  Sender: FDA-Public Use
  Company Number: None

PATIENT
  Age: 67 Year
  Sex: Female

DRUGS (2)
  1. CISPLATIN [Suspect]
     Active Substance: CISPLATIN
     Indication: Serous cystadenocarcinoma ovary
  2. GEMCITABINE [Suspect]
     Active Substance: GEMCITABINE
     Indication: Serous cystadenocarcinoma ovary

REACTIONS (3)
  - Pericardial effusion [Unknown]
  - Pulmonary embolism [Unknown]
  - Off label use [Unknown]
